FAERS Safety Report 9761429 (Version 1)
Quarter: 2013Q4

REPORT INFORMATION
  Report Type: Spontaneous
  Country: US (occurrence: US)
  Receive Date: 20131216
  Receipt Date: 20131216
  Transmission Date: 20140711
  Serious: No
  Sender: FDA-Public Use
  Company Number: US-BIOGENIDEC-2013BI104265

PATIENT
  Sex: Female

DRUGS (5)
  1. TECFIDERA [Suspect]
     Indication: RELAPSING-REMITTING MULTIPLE SCLEROSIS
     Route: 048
     Dates: start: 20130807
  2. SYMBICORT [Concomitant]
  3. LEVOTHYROXINE [Concomitant]
  4. VITAMIN D [Concomitant]
  5. MACROBID [Concomitant]
     Dates: start: 20131020

REACTIONS (2)
  - Palpitations [Unknown]
  - Tremor [Unknown]
